FAERS Safety Report 8561189-6 (Version None)
Quarter: 2012Q3

REPORT INFORMATION
  Report Type: 
  Country: None (occurrence: None)
  Receive Date: 20120802
  Receipt Date: 20120726
  Transmission Date: 20120928
  Serious: Yes (Other)
  Sender: FDA-Public Use
  Company Number: JP-VERTEX PHARMACEUTICALS INC.-AE-2012-007092

PATIENT
  Age: 58 Year
  Sex: Female

DRUGS (13)
  1. TELAVIC (TELAPREVIR) [Suspect]
     Indication: HEPATITIS C
     Route: 048
     Dates: start: 20120321, end: 20120612
  2. ACETAMINOPHEN [Concomitant]
     Route: 048
     Dates: start: 20120312
  3. REBETOL [Concomitant]
     Indication: HEPATITIS C
     Route: 048
     Dates: start: 20120321
  4. FERROUS FUMARATE [Concomitant]
     Route: 048
  5. PEG-INTRON [Concomitant]
     Indication: HEPATITIS C
     Route: 051
     Dates: start: 20120321, end: 20120321
  6. NATEGLINIDE [Concomitant]
     Route: 048
  7. REBETOL [Concomitant]
     Route: 048
     Dates: start: 20120509, end: 20120529
  8. PEG-INTRON [Concomitant]
     Route: 058
     Dates: start: 20120328
  9. ARTIST [Concomitant]
     Route: 048
  10. GASMOTIN [Concomitant]
     Route: 048
  11. MAGMITT [Concomitant]
     Route: 048
  12. REBETOL [Concomitant]
     Route: 048
     Dates: start: 20120530
  13. AMLODIPINE [Concomitant]
     Route: 048

REACTIONS (1)
  - NEUTROPHIL COUNT DECREASED [None]
